FAERS Safety Report 13484396 (Version 3)
Quarter: 2018Q1

REPORT INFORMATION
  Report Type: Report from Study
  Country: DE (occurrence: DE)
  Receive Date: 20170425
  Receipt Date: 20180130
  Transmission Date: 20180508
  Serious: Yes (Hospitalization)
  Sender: FDA-Public Use
  Company Number: DE-ROCHE-1924577

PATIENT
  Age: 52 Year
  Sex: Male

DRUGS (6)
  1. SIMVASTATIN. [Concomitant]
     Active Substance: SIMVASTATIN
  2. ENALAPRIL [Concomitant]
     Active Substance: ENALAPRIL
  3. PANTOPRAZOL [Concomitant]
     Active Substance: PANTOPRAZOLE SODIUM
  4. PREDNISOLON [Concomitant]
     Active Substance: PREDNISOLONE
  5. CITALOPRAM [Concomitant]
     Active Substance: CITALOPRAM HYDROBROMIDE
  6. TOCILIZUMAB. [Suspect]
     Active Substance: TOCILIZUMAB
     Indication: RHEUMATOID ARTHRITIS
     Route: 058
     Dates: end: 20170412

REACTIONS (5)
  - Carotid artery dissection [Not Recovered/Not Resolved]
  - Paraesthesia [Unknown]
  - Diagnostic procedure [Recovered/Resolved]
  - Cerebral infarction [Unknown]
  - Vertebral artery dissection [Unknown]

NARRATIVE: CASE EVENT DATE: 20161023
